FAERS Safety Report 7833632-9 (Version None)
Quarter: 2011Q4

REPORT INFORMATION
  Report Type: 
  Country: None (occurrence: None)
  Receive Date: 20111024
  Receipt Date: 20111019
  Transmission Date: 20120403
  Serious: Yes (Other)
  Sender: FDA-Public Use
  Company Number: US-AMGEN-USASP2011047840

PATIENT
  Age: 74 Year
  Sex: Female
  Weight: 53.515 kg

DRUGS (13)
  1. RESTORIL [Concomitant]
     Dosage: 30 MG, QHS
     Route: 048
  2. CITALOPRAM [Concomitant]
     Dosage: 10 MG, QD
     Route: 048
  3. GABAPENTIN [Concomitant]
     Dosage: 100 MG, TID
     Route: 048
  4. EMLA [Concomitant]
     Dosage: UNK
     Route: 061
  5. ATENOLOL [Concomitant]
     Dosage: 25 MG, QD
     Route: 048
  6. AMBIEN [Concomitant]
     Dosage: 5 UNK, QHS
     Route: 048
  7. PREDNISONE [Concomitant]
     Indication: IDIOPATHIC THROMBOCYTOPENIC PURPURA
     Dosage: 5 MG, QD
     Route: 048
  8. DANAZOL [Concomitant]
     Dosage: 200 MG, TID
     Route: 048
  9. FOLIC ACID [Concomitant]
  10. NPLATE [Suspect]
     Indication: IDIOPATHIC THROMBOCYTOPENIC PURPURA
     Dosage: 500 MUG, QWK
     Route: 058
     Dates: start: 20100923
  11. CORTICOSTEROIDS [Concomitant]
     Indication: IDIOPATHIC THROMBOCYTOPENIC PURPURA
  12. PROMACTA [Concomitant]
     Indication: IDIOPATHIC THROMBOCYTOPENIC PURPURA
     Dosage: 50 MG, UNK
     Dates: start: 20110524
  13. PACERONE [Concomitant]
     Dosage: 200 MG, QD
     Route: 048

REACTIONS (3)
  - BREAST CANCER [None]
  - BONE MARROW RETICULIN FIBROSIS [None]
  - METASTATIC NEOPLASM [None]
